FAERS Safety Report 5759027-X (Version None)
Quarter: 2008Q2

REPORT INFORMATION
  Report Type: 
  Country: None (occurrence: None)
  Receive Date: 20080604
  Receipt Date: 20080529
  Transmission Date: 20081010
  Serious: Yes (Other)
  Sender: FDA-Public Use
  Company Number: US-SANOFI-SYNTHELABO-A03200802055

PATIENT
  Age: 21 Year
  Sex: Male

DRUGS (1)
  1. AMBIEN [Suspect]
     Indication: INSOMNIA
     Route: 048
     Dates: start: 20080519, end: 20080519

REACTIONS (8)
  - DISORIENTATION [None]
  - DRUG INEFFECTIVE [None]
  - EPISTAXIS [None]
  - IMPAIRED DRIVING ABILITY [None]
  - INTENTIONAL OVERDOSE [None]
  - MOUTH HAEMORRHAGE [None]
  - ROAD TRAFFIC ACCIDENT [None]
  - SOMNOLENCE [None]
